FAERS Safety Report 24609609 (Version 3)
Quarter: 2025Q3

REPORT INFORMATION
  Report Type: Spontaneous
  Country: EU (occurrence: EU)
  Receive Date: 20241112
  Receipt Date: 20250801
  Transmission Date: 20251021
  Serious: Yes (Disabling, Other)
  Sender: PFIZER
  Company Number: EU-ROCHE-10000122102

PATIENT
  Age: 42 Year
  Sex: Female

DRUGS (4)
  1. TRASTUZUMAB [Suspect]
     Active Substance: TRASTUZUMAB
     Indication: HER2 positive breast cancer
     Route: 058
  2. PERTUZUMAB [Suspect]
     Active Substance: PERTUZUMAB
     Indication: HER2 positive breast cancer
     Route: 058
  3. DOCETAXEL [Suspect]
     Active Substance: DOCETAXEL
     Indication: HER2 positive breast cancer
  4. CARBOPLATIN [Suspect]
     Active Substance: CARBOPLATIN
     Indication: HER2 positive breast cancer

REACTIONS (5)
  - Papilloedema [Recovering/Resolving]
  - Central vision loss [Recovered/Resolved]
  - Headache [Unknown]
  - Dizziness [Unknown]
  - Off label use [Unknown]
